FAERS Safety Report 23522892 (Version 2)
Quarter: 2024Q1

REPORT INFORMATION
  Report Type: Report from Study
  Country: IE (occurrence: IE)
  Receive Date: 20240214
  Receipt Date: 20240220
  Transmission Date: 20240410
  Serious: Yes (Hospitalization)
  Sender: FDA-Public Use
  Company Number: IE-AstraZeneca-2023A241584

PATIENT
  Age: 6 Month
  Sex: Female

DRUGS (5)
  1. SYNAGIS [Suspect]
     Active Substance: PALIVIZUMAB
     Indication: Trisomy 21
     Dosage: EVERY FOUR WEEKS
     Route: 030
     Dates: start: 20231019
  2. SYNAGIS [Suspect]
     Active Substance: PALIVIZUMAB
     Dosage: EVERY FOUR WEEKS
     Route: 030
     Dates: start: 20240110
  3. SYNAGIS [Suspect]
     Active Substance: PALIVIZUMAB
     Dosage: EVERY FOUR WEEKS
     Route: 030
     Dates: start: 20240212
  4. FUROSEMIDE [Concomitant]
     Active Substance: FUROSEMIDE
     Indication: Product used for unknown indication
     Dosage: ONCE A DAY
  5. SPIRONOLACTONE [Concomitant]
     Active Substance: SPIRONOLACTONE
     Indication: Product used for unknown indication
     Dosage: ONCE A DAY

REACTIONS (3)
  - Chylothorax [Not Recovered/Not Resolved]
  - Off label use [Not Recovered/Not Resolved]
  - Incorrect dose administered [Not Recovered/Not Resolved]
